FAERS Safety Report 6793076-8 (Version None)
Quarter: 2010Q2

REPORT INFORMATION
  Report Type: 
  Country: None (occurrence: None)
  Receive Date: 20100624
  Receipt Date: 20081202
  Transmission Date: 20101027
  Serious: No
  Sender: FDA-Public Use
  Company Number: US-PFIZER INC-2008100401

PATIENT
  Sex: Female
  Weight: 53.636 kg

DRUGS (3)
  1. XALATAN [Suspect]
     Indication: GLAUCOMA
     Dosage: 2 GTT, 1X/DAY
     Route: 047
     Dates: start: 20080101
  2. OXAZEPAM [Concomitant]
  3. SERAX [Concomitant]

REACTIONS (1)
  - HYPOKINESIA [None]
